FAERS Safety Report 11706192 (Version 1)
Quarter: 2015Q4

REPORT INFORMATION
  Report Type: Report from Study
  Country: US (occurrence: US)
  Receive Date: 20151106
  Receipt Date: 20151106
  Transmission Date: 20160304
  Serious: Yes (Other)
  Sender: FDA-Public Use
  Company Number: US-BRISTOL-MYERS SQUIBB COMPANY-13881784

PATIENT
  Age: 42 Year
  Sex: Female

DRUGS (2)
  1. ATAZANAVIR SULFATE [Suspect]
     Active Substance: ATAZANAVIR SULFATE
     Indication: HIV INFECTION
     Dosage: 400 MG, QD
     Route: 048
  2. COMBIVIR [Concomitant]
     Active Substance: LAMIVUDINE\ZIDOVUDINE
     Indication: HIV INFECTION
     Dosage: 900 MG, QD
     Route: 048

REACTIONS (4)
  - Twin pregnancy [Recovered/Resolved]
  - Live birth [Unknown]
  - Gestational diabetes [Unknown]
  - Premature delivery [Unknown]

NARRATIVE: CASE EVENT DATE: 20070726
